FAERS Safety Report 6961406-X (Version None)
Quarter: 2010Q3

REPORT INFORMATION
  Report Type: 
  Country: None (occurrence: None)
  Receive Date: 20100901
  Receipt Date: 20100819
  Transmission Date: 20110219
  Serious: Yes (Other)
  Sender: FDA-Public Use
  Company Number: PHEH2007US12316

PATIENT
  Sex: Female

DRUGS (23)
  1. ELIDEL [Suspect]
     Indication: DERMATITIS
     Dosage: 30 G, UNK
     Route: 061
     Dates: start: 20020901
  2. PREDNISONE [Concomitant]
  3. ZANTAC [Concomitant]
  4. ZOFRAN [Concomitant]
  5. PHENERGAN ^AVENTIS PHARMA^ [Concomitant]
  6. BENADRYL ^ACHE^ [Concomitant]
  7. BACTRIM [Concomitant]
  8. VINCRISTINE [Concomitant]
  9. DOXORUBICIN HCL [Concomitant]
  10. BLEOMYCIN SULFATE [Concomitant]
  11. ETOPOSIDE [Concomitant]
  12. CYCLOPHOSPHAMIDE [Concomitant]
  13. ACETAMINOPHEN [Concomitant]
  14. DIPHENHYDRAMINE HCL [Concomitant]
  15. ONDANSETRON [Concomitant]
  16. PROMETHAZINE [Concomitant]
  17. TAGAMET [Concomitant]
  18. SYNTHROID [Concomitant]
  19. CHEMOTHERAPEUTICS NOS [Concomitant]
  20. CLARITIN [Concomitant]
  21. FLONASE [Concomitant]
  22. INFLUENZA VACCINES [Concomitant]
  23. GARDASIL [Concomitant]

REACTIONS (24)
  - CENTRAL VENOUS CATHETER REMOVAL [None]
  - CENTRAL VENOUS CATHETERISATION [None]
  - CONJUNCTIVITIS INFECTIVE [None]
  - CORNEAL NEOVASCULARISATION [None]
  - CORNEAL OPACITY [None]
  - DYSMENORRHOEA [None]
  - EAR INFECTION [None]
  - EYE IRRITATION [None]
  - EYE PRURITUS [None]
  - HEADACHE [None]
  - HILAR LYMPHADENOPATHY [None]
  - HODGKIN'S DISEASE [None]
  - HYPERSENSITIVITY [None]
  - HYPOTHYROIDISM [None]
  - KERATITIS INTERSTITIAL [None]
  - LYMPHADENOPATHY [None]
  - MENSTRUATION IRREGULAR [None]
  - MYCOPLASMA INFECTION [None]
  - MYOPIA [None]
  - OSTEOCHONDRITIS [None]
  - PHARYNGITIS [None]
  - SINUSITIS [None]
  - TOOTH EXTRACTION [None]
  - VIRAL INFECTION [None]
